FAERS Safety Report 4847317-4 (Version None)
Quarter: 2005Q4

REPORT INFORMATION
  Report Type: 
  Country: None (occurrence: None)
  Receive Date: 20051207
  Receipt Date: 20051128
  Transmission Date: 20060501
  Serious: Yes (Death)
  Sender: FDA-Public Use
  Company Number: IT-BRISTOL-MYERS SQUIBB COMPANY-13201595

PATIENT

DRUGS (1)
  1. ABILIFY [Suspect]

REACTIONS (1)
  - DRUG TOXICITY [None]
